FAERS Safety Report 5121291-8 (Version None)
Quarter: 2006Q4

REPORT INFORMATION
  Report Type: 
  Country: None (occurrence: None)
  Receive Date: 20061002
  Receipt Date: 20060917
  Transmission Date: 20070319
  Serious: Yes (Other)
  Sender: FDA-Public Use
  Company Number: 2006112089

PATIENT
  Age: 17 Year

DRUGS (3)
  1. GEODON [Suspect]
     Dosage: 80 MG (AT NIGHT)
  2. LAMICTAL [Concomitant]
  3. CYMBALTA [Concomitant]

REACTIONS (4)
  - BLOOD PRESSURE DECREASED [None]
  - LOSS OF CONSCIOUSNESS [None]
  - MOVEMENT DISORDER [None]
  - SEDATION [None]
